FAERS Safety Report 4284400-9 (Version None)
Quarter: 2004Q1

REPORT INFORMATION
  Report Type: 
  Country: None (occurrence: None)
  Receive Date: 20040130
  Receipt Date: 20040130
  Transmission Date: 20041129
  Serious: Yes (Hospitalization)
  Sender: FDA-Public Use
  Company Number: None

PATIENT
  Age: 67 Year
  Sex: Male
  Weight: 66.6 kg

DRUGS (10)
  1. BACTRIM [Suspect]
     Dosage: DS BID
  2. GLYBURIDE [Suspect]
     Indication: DIABETES MELLITUS NON-INSULIN-DEPENDENT
  3. CLONIDINE [Suspect]
     Indication: HYPERTENSION
     Dosage: 0.2G Q/H FOR SLEEP
  4. CLONIDINE [Suspect]
     Indication: SLEEP DISORDER
     Dosage: 0.2G Q/H FOR SLEEP
  5. ASPIRIN [Concomitant]
  6. CLONAZEPAM [Concomitant]
  7. LISINOPRIL [Concomitant]
  8. PRAVASTATIN [Concomitant]
  9. SERTRALINE HCL [Concomitant]
  10. HAART [Concomitant]

REACTIONS (6)
  - ASTHENIA [None]
  - FATIGUE [None]
  - HYPOGLYCAEMIA [None]
  - HYPOTENSION [None]
  - PYREXIA [None]
  - RENAL FAILURE ACUTE [None]
